FAERS Safety Report 17648009 (Version 1)
Quarter: 2020Q2

REPORT INFORMATION
  Report Type: Report from Study
  Country: None (occurrence: DE)
  Receive Date: 20200408
  Receipt Date: 20200408
  Transmission Date: 20200713
  Serious: Yes (Death)
  Sender: FDA-Public Use
  Company Number: DE-ABBVIE-20K-062-3356500-00

PATIENT
  Age: 77 Year
  Sex: Female

DRUGS (1)
  1. DUODOPA [Suspect]
     Active Substance: CARBIDOPA\LEVODOPA
     Indication: PARKINSON^S DISEASE
     Dosage: MD 8.0ML / CRD 1.1ML/H / CRN 1.1ML/H / ED 1.0ML?20 MG/ML 5 MG/ML
     Route: 050
     Dates: start: 20170720

REACTIONS (1)
  - Death [Fatal]

NARRATIVE: CASE EVENT DATE: 20200217
